FAERS Safety Report 11323615 (Version 1)
Quarter: 2015Q3

REPORT INFORMATION
  Report Type: Spontaneous
  Country: CH (occurrence: CH)
  Receive Date: 20150730
  Receipt Date: 20150730
  Transmission Date: 20151125
  Serious: Yes (Hospitalization)
  Sender: FDA-Public Use
  Company Number: CH-TEVA-580940ISR

PATIENT
  Age: 67 Year
  Sex: Female

DRUGS (5)
  1. DIAMICRON MR 30 MG [Suspect]
     Active Substance: GLICLAZIDE
     Indication: TYPE 2 DIABETES MELLITUS
     Dosage: 30 MILLIGRAM DAILY; START DATE UNKNOWN, USED LONG-TERM
     Route: 048
     Dates: end: 20150616
  2. EUTHYROX [Suspect]
     Active Substance: LEVOTHYROXINE SODIUM
     Indication: TYPE 2 DIABETES MELLITUS
     Dosage: 50 MICROGRAM DAILY; CONTINUING
     Route: 048
  3. METFORMIN-MEPHA 500 LACTAB [Suspect]
     Active Substance: METFORMIN HYDROCHLORIDE
     Indication: TYPE 2 DIABETES MELLITUS
     Dosage: 3000 MILLIGRAM DAILY; START DATE UNKNOWN, USED LONG-TERM
     Route: 048
     Dates: end: 20150616
  4. TAVANIC 500 MG FILMTABLETTEN [Suspect]
     Active Substance: LEVOFLOXACIN
     Indication: PRODUCTIVE COUGH
     Dosage: 500 MILLIGRAM DAILY;
     Route: 048
     Dates: start: 20150611, end: 20150616
  5. TAVANIC 500 MG FILMTABLETTEN [Suspect]
     Active Substance: LEVOFLOXACIN
     Indication: PYREXIA

REACTIONS (4)
  - Autoimmune hepatitis [Recovering/Resolving]
  - Jaundice [Recovering/Resolving]
  - Pyrexia [Recovered/Resolved]
  - Hepatic necrosis [Recovering/Resolving]

NARRATIVE: CASE EVENT DATE: 20150616
